FAERS Safety Report 16905383 (Version 2)
Quarter: 2019Q4

REPORT INFORMATION
  Report Type: Spontaneous
  Country: TW (occurrence: TW)
  Receive Date: 20191010
  Receipt Date: 20191018
  Transmission Date: 20200122
  Serious: Yes (Hospitalization, Other)
  Sender: FDA-Public Use
  Company Number: TW-OTSUKA-2019_034613

PATIENT
  Age: 41 Year
  Sex: Female

DRUGS (4)
  1. JINARC TABLETS [Suspect]
     Active Substance: TOLVAPTAN
     Indication: CONGENITAL CYSTIC KIDNEY DISEASE
     Dosage: 60 MG, QD
     Route: 048
     Dates: start: 20190711, end: 20190813
  2. JINARC TABLETS [Suspect]
     Active Substance: TOLVAPTAN
     Dosage: 120 MG, QD
     Route: 048
     Dates: start: 20190904, end: 20190930
  3. EXFORGE [Concomitant]
     Active Substance: AMLODIPINE BESYLATE\VALSARTAN
     Indication: HYPERTENSION
     Dosage: 1 DF, QD
     Route: 065
     Dates: start: 2015
  4. JINARC TABLETS [Suspect]
     Active Substance: TOLVAPTAN
     Dosage: 90 MG, QD
     Route: 048
     Dates: start: 20190814, end: 20190903

REACTIONS (1)
  - Cerebrovascular accident [Recovered/Resolved]

NARRATIVE: CASE EVENT DATE: 20191001
